FAERS Safety Report 21233727 (Version 1)
Quarter: 2022Q3

REPORT INFORMATION
  Report Type: Spontaneous
  Country: CN (occurrence: CN)
  Receive Date: 20220819
  Receipt Date: 20220819
  Transmission Date: 20221027
  Serious: Yes (Other)
  Sender: FDA-Public Use
  Company Number: CN-BAYER-2022A115336

PATIENT
  Age: 25 Year
  Sex: Female
  Weight: 55 kg

DRUGS (1)
  1. YAZ [Suspect]
     Active Substance: DROSPIRENONE\ETHINYL ESTRADIOL
     Indication: Menstrual disorder
     Dosage: 1 DF, QD
     Route: 048
     Dates: start: 20220201, end: 20220727

REACTIONS (4)
  - Drug-induced liver injury [None]
  - Hepatic steatosis [None]
  - Hepatic function abnormal [Unknown]
  - Off label use [None]

NARRATIVE: CASE EVENT DATE: 20220101
